FAERS Safety Report 4559097-0 (Version None)
Quarter: 2005Q1

REPORT INFORMATION
  Report Type: 
  Country: None (occurrence: None)
  Receive Date: 20050120
  Receipt Date: 20050120
  Transmission Date: 20050727
  Serious: Yes (Hospitalization)
  Sender: FDA-Public Use
  Company Number: None

PATIENT
  Age: 83 Year
  Sex: Male
  Weight: 80.8 kg

DRUGS (13)
  1. WARFARIN SODIUM [Suspect]
     Indication: CEREBROVASCULAR ACCIDENT PROPHYLAXIS
     Dosage: 9 MG PO DAILY CHRONIC
     Route: 048
  2. ASPIRIN [Suspect]
     Indication: CEREBROVASCULAR ACCIDENT PROPHYLAXIS
     Dosage: 81 MG PO DAILY CHRONIC
     Route: 048
  3. CLONIDINE [Concomitant]
  4. PAXIL [Concomitant]
  5. PROVACHOL [Concomitant]
  6. M.V.I. [Concomitant]
  7. SENOKOT [Concomitant]
  8. PREVACID [Concomitant]
  9. NORVASC [Concomitant]
  10. FE GLUCONATE [Concomitant]
  11. VIT C [Concomitant]
  12. ZINC [Concomitant]
  13. ARICEPT [Concomitant]

REACTIONS (3)
  - COLONIC HAEMORRHAGE [None]
  - INTERNATIONAL NORMALISED RATIO INCREASED [None]
  - LOWER GASTROINTESTINAL HAEMORRHAGE [None]
